FAERS Safety Report 19021140 (Version 1)
Quarter: 2021Q1

REPORT INFORMATION
  Report Type: Report from Study
  Country: CN (occurrence: CN)
  Receive Date: 20210317
  Receipt Date: 20210317
  Transmission Date: 20210420
  Serious: Yes (Other)
  Sender: FDA-Public Use
  Company Number: CN-BRISTOL-MYERS SQUIBB COMPANY-BMS-2021-024185

PATIENT
  Age: 58 Year
  Sex: Male

DRUGS (1)
  1. NIVOLUMAB [Suspect]
     Active Substance: NIVOLUMAB
     Indication: LUNG SQUAMOUS CELL CARCINOMA STAGE I
     Dosage: 200 MILLIGRAM
     Route: 065
     Dates: start: 2017

REACTIONS (7)
  - Drug resistance [Unknown]
  - Tooth loss [Unknown]
  - Fatigue [Unknown]
  - Malignant neoplasm progression [Unknown]
  - Radiation pneumonitis [Unknown]
  - Pyrexia [Unknown]
  - Somnolence [Unknown]

NARRATIVE: CASE EVENT DATE: 2017
